FAERS Safety Report 14453165 (Version 1)
Quarter: 2018Q1

REPORT INFORMATION
  Report Type: Spontaneous
  Country: GB (occurrence: GB)
  Receive Date: 20180129
  Receipt Date: 20180129
  Transmission Date: 20180509
  Serious: Yes (Other)
  Sender: FDA-Public Use
  Company Number: GB-TEVA-2018-GB-850901

PATIENT
  Age: 22 Year
  Sex: Female
  Weight: 65 kg

DRUGS (3)
  1. METRONIDAZOLE. [Suspect]
     Active Substance: METRONIDAZOLE
     Route: 065
     Dates: start: 20171207
  2. SUMATRIPTAN. [Concomitant]
     Active Substance: SUMATRIPTAN
     Dosage: TAKE ONE AS DIRECTED. DOSE MAY BE REPEATED
     Dates: start: 20171013
  3. NAPROXEN. [Concomitant]
     Active Substance: NAPROXEN
     Dosage: 2 DOSAGE FORMS DAILY; WITH OR JUST AFTER FOOD
     Dates: start: 20170919, end: 20171003

REACTIONS (3)
  - Dysgeusia [Unknown]
  - Malaise [Unknown]
  - Dizziness [Recovering/Resolving]

NARRATIVE: CASE EVENT DATE: 20171207
